FAERS Safety Report 21651258 (Version 7)
Quarter: 2023Q1

REPORT INFORMATION
  Report Type: Report from Study
  Country: JP (occurrence: JP)
  Receive Date: 20221128
  Receipt Date: 20230301
  Transmission Date: 20230418
  Serious: Yes (Hospitalization)
  Sender: FDA-Public Use
  Company Number: JP-PFIZER INC-PV202200106491

PATIENT
  Age: 70 Year
  Sex: Male
  Weight: 71.9 kg

DRUGS (29)
  1. OXALIPLATIN [Suspect]
     Active Substance: OXALIPLATIN
     Indication: Colorectal cancer metastatic
     Dosage: 160 MG, CYCLIC (EVERY 2 WEEKS)
     Route: 042
     Dates: start: 20220915, end: 20221110
  2. FLUOROURACIL [Suspect]
     Active Substance: FLUOROURACIL
     Indication: Colorectal cancer metastatic
     Dosage: 753.2 MG, CYCLIC (EVERY 2 WEEKS)
     Route: 040
     Dates: start: 20220915, end: 20221110
  3. FLUOROURACIL [Suspect]
     Active Substance: FLUOROURACIL
     Dosage: 4519.2 MG, CYCLIC (EVERY 2 WEEKS)
     Route: 041
     Dates: start: 20220915, end: 20221110
  4. LEVOLEUCOVORIN CALCIUM [Suspect]
     Active Substance: LEVOLEUCOVORIN CALCIUM
     Indication: Colorectal cancer metastatic
     Dosage: 376.6 MG, CYCLIC (EVERY 2 WEEKS)
     Route: 042
     Dates: start: 20220915, end: 20221110
  5. BEVACIZUMAB [Suspect]
     Active Substance: BEVACIZUMAB
     Indication: Colorectal cancer metastatic
     Dosage: 360 MG, CYCLIC (EVERY 2 WEEKS)
     Route: 042
     Dates: start: 20220915, end: 20221110
  6. ALOXI [Concomitant]
     Active Substance: PALONOSETRON HYDROCHLORIDE
     Indication: Prophylaxis
     Dosage: UNK
     Dates: start: 20220915, end: 20221110
  7. DEXAMETHASONE SODIUM PHOSPHATE [Concomitant]
     Active Substance: DEXAMETHASONE SODIUM PHOSPHATE
     Indication: Prophylaxis
     Dosage: UNK
     Dates: start: 20220915, end: 20221110
  8. GLUCOSE OTSUKA [Concomitant]
     Indication: Fluid replacement
     Dosage: 5 %
     Dates: start: 20220915, end: 20221110
  9. DEXTROSE [Concomitant]
     Active Substance: DEXTROSE
     Indication: Fluid replacement
     Dosage: PURIFIED
     Dates: start: 20220915, end: 20221110
  10. EMEND [Concomitant]
     Active Substance: APREPITANT
     Indication: Prophylaxis
     Dosage: UNK
     Dates: start: 20220915, end: 20221027
  11. NOVAMIN [Concomitant]
     Indication: Nausea
     Dosage: UNK
     Dates: start: 20220905, end: 20221117
  12. UNSPECIFIED INGREDIENT [Concomitant]
     Active Substance: UNSPECIFIED INGREDIENT
     Indication: Nausea
     Dosage: UNK
     Dates: start: 202207, end: 20221117
  13. DOMPERIDONE [Concomitant]
     Active Substance: DOMPERIDONE
     Indication: Nausea
     Dosage: UNK
     Dates: start: 20220918, end: 20221117
  14. DECADRON [Concomitant]
     Active Substance: DEXAMETHASONE
     Indication: Nausea
     Dosage: UNK
     Dates: start: 20220918, end: 20221117
  15. HACHIAZULE [SODIUM GUALENATE] [Concomitant]
     Indication: Stomatitis
     Dosage: UNK
     Dates: start: 20220918, end: 20221117
  16. LOPERAMIDE [Concomitant]
     Active Substance: LOPERAMIDE
     Indication: Diarrhoea
     Dosage: UNK
     Dates: start: 20220918, end: 20221117
  17. DAYVIGO [Concomitant]
     Active Substance: LEMBOREXANT
     Indication: Insomnia
     Dosage: UNK
     Dates: start: 20220922, end: 20221117
  18. MIROGABALIN BESYLATE [Concomitant]
     Active Substance: MIROGABALIN BESYLATE
     Indication: Peripheral sensory neuropathy
     Dosage: 1X/DAY (OD)
     Dates: start: 20221011, end: 20221117
  19. MIRTAZAPINE [Concomitant]
     Active Substance: MIRTAZAPINE
     Indication: Peripheral sensory neuropathy
     Dosage: OD
     Dates: start: 20221011, end: 20221027
  20. CALONAL [Concomitant]
     Active Substance: ACETAMINOPHEN
     Indication: Nasopharyngitis
     Dosage: UNK
     Dates: start: 20221110, end: 20221117
  21. DEXTROMETHORPHAN HYDROBROMIDE [Concomitant]
     Active Substance: DEXTROMETHORPHAN HYDROBROMIDE
     Indication: Nasopharyngitis
     Dosage: UNK
     Dates: start: 20221110, end: 20221117
  22. FEXOFENADINE HCL [Concomitant]
     Active Substance: FEXOFENADINE HYDROCHLORIDE
     Indication: Nasopharyngitis
     Dosage: OD
     Dates: start: 20221114, end: 20221117
  23. OXYCONTIN [Concomitant]
     Active Substance: OXYCODONE HYDROCHLORIDE
     Indication: Tumour pain
     Dosage: UNK
     Dates: start: 20221116, end: 20221117
  24. OXYCODONE HYDROCHLORIDE [Concomitant]
     Active Substance: OXYCODONE HYDROCHLORIDE
     Indication: Tumour pain
     Dosage: UNK
     Dates: start: 20221116, end: 20221117
  25. MAGNESIUM OXIDE [Concomitant]
     Active Substance: MAGNESIUM OXIDE
     Indication: Constipation prophylaxis
     Dosage: UNK
     Dates: start: 20221116, end: 20221116
  26. SENNOSIDES A AND B [Concomitant]
     Active Substance: SENNOSIDES A AND B
     Indication: Constipation prophylaxis
     Dosage: UNK
     Dates: start: 20221116, end: 20221116
  27. FLURBIPROFEN AXETIL [Concomitant]
     Active Substance: FLURBIPROFEN AXETIL
     Indication: Tumour pain
     Dosage: UNK
     Dates: start: 20221116, end: 20221116
  28. ACETAMINOPHEN [Concomitant]
     Active Substance: ACETAMINOPHEN
     Indication: Tumour pain
     Dosage: UNK
     Dates: start: 20221116, end: 20221116
  29. CALCIUM CHLORIDE ANHYDROUS\POTASSIUM CHLORIDE\SODIUM CHLORIDE\SODIUM L [Concomitant]
     Active Substance: CALCIUM CHLORIDE ANHYDROUS\POTASSIUM CHLORIDE\SODIUM CHLORIDE\SODIUM LACTATE
     Indication: Fluid replacement
     Dosage: UNK
     Dates: start: 20221116, end: 20221116

REACTIONS (1)
  - Pneumonia [Recovering/Resolving]

NARRATIVE: CASE EVENT DATE: 20221118
